FAERS Safety Report 12655029 (Version 1)
Quarter: 2016Q3

REPORT INFORMATION
  Report Type: Report from Study
  Country: US (occurrence: US)
  Receive Date: 20160816
  Receipt Date: 20160816
  Transmission Date: 20161109
  Serious: Yes (Other)
  Sender: FDA-Public Use
  Company Number: US-ROCHE-1318989

PATIENT
  Sex: Female

DRUGS (1)
  1. BONIVA [Suspect]
     Active Substance: IBANDRONATE SODIUM
     Indication: SENILE OSTEOPOROSIS
     Dosage: 3 MG/ML, RECEIVED LAST TREATMENT ON 21/MAR/2013
     Route: 042

REACTIONS (2)
  - Compression fracture [Unknown]
  - Gastrointestinal haemorrhage [Unknown]
